FAERS Safety Report 10174070 (Version 1)
Quarter: 2014Q2

REPORT INFORMATION
  Report Type: Spontaneous
  Country: CA (occurrence: None)
  Receive Date: 20140513
  Receipt Date: 20140513
  Transmission Date: 20141212
  Serious: Yes (Other)
  Sender: FDA-Public Use
  Company Number: VAL_03113_2014

PATIENT
  Sex: Female

DRUGS (2)
  1. ROCALTROL [Suspect]
     Indication: PRODUCT USED FOR UNKNOWN INDICATION
     Route: 048
  2. CALCIUM [Concomitant]

REACTIONS (8)
  - Abdominal discomfort [None]
  - Anxiety [None]
  - Dyspepsia [None]
  - Abdominal discomfort [None]
  - Muscle twitching [None]
  - Muscle spasms [None]
  - Pain [None]
  - Calcium ionised decreased [None]
